FAERS Safety Report 9814279 (Version 2)
Quarter: 2014Q1

REPORT INFORMATION
  Report Type: Report from Study
  Country: US (occurrence: US)
  Receive Date: 20140113
  Receipt Date: 20140113
  Transmission Date: 20141002
  Serious: Yes (Hospitalization, Other)
  Sender: FDA-Public Use
  Company Number: US-ABBVIE-13P-163-1135326-00

PATIENT
  Age: 65 Year
  Sex: Male

DRUGS (20)
  1. HUMIRA [Suspect]
     Indication: RHEUMATOID ARTHRITIS
  2. HUMIRA [Suspect]
     Indication: RHEUMATOID ARTHRITIS
  3. SYNTHROID [Concomitant]
     Indication: THYROIDECTOMY
  4. SYNTHROID [Concomitant]
     Dosage: QAM ON EMPTY STOMACH
  5. BABY ASPIRIN [Concomitant]
     Indication: PRODUCT USED FOR UNKNOWN INDICATION
  6. MSIR [Concomitant]
     Indication: PAIN
  7. AVINZA [Concomitant]
     Indication: PAIN
     Dosage: EVERY MORNING
  8. TRIAMTERENCE-HCTZ [Concomitant]
     Indication: PRODUCT USED FOR UNKNOWN INDICATION
     Dosage: 37.5-25MG QD
     Route: 048
  9. LEVOTHYROXINE SODIUM [Concomitant]
     Indication: PRODUCT USED FOR UNKNOWN INDICATION
     Route: 048
  10. MORPHINE SULFATE CR EXTENDED RELEASE 12 HOUR [Concomitant]
     Indication: PRODUCT USED FOR UNKNOWN INDICATION
  11. NORCO [Concomitant]
     Indication: PRODUCT USED FOR UNKNOWN INDICATION
     Dosage: 10/325MG 2 T QID PRN
  12. Z-PAK [Concomitant]
     Indication: PRODUCT USED FOR UNKNOWN INDICATION
     Dosage: DAY 1
  13. Z-PAK [Concomitant]
     Dosage: X 4 DAYS
  14. AVINZA [Concomitant]
     Indication: PRODUCT USED FOR UNKNOWN INDICATION
  15. MORPHINE SULFATE [Concomitant]
     Indication: PRODUCT USED FOR UNKNOWN INDICATION
     Dosage: PRN Q4H
  16. MAXZIDE [Concomitant]
     Indication: PRODUCT USED FOR UNKNOWN INDICATION
     Dosage: 37.5/25MG QAM
  17. ESTAZOLAM [Concomitant]
     Indication: PRODUCT USED FOR UNKNOWN INDICATION
     Dosage: QPM PRN
  18. CIPRO [Concomitant]
     Indication: PRODUCT USED FOR UNKNOWN INDICATION
  19. PREDNISONE [Concomitant]
     Indication: PRODUCT USED FOR UNKNOWN INDICATION
     Dosage: 1-2 TABLETS PO QD
     Route: 048
  20. CYPROHEPTADINE HCL [Concomitant]
     Indication: PRURITUS
     Dosage: 1 TAB TID PRN

REACTIONS (10)
  - Intervertebral disc protrusion [Recovering/Resolving]
  - Road traffic accident [Recovering/Resolving]
  - Hypoaesthesia [Recovering/Resolving]
  - Paraesthesia [Recovering/Resolving]
  - Basal cell carcinoma [Unknown]
  - Rheumatoid arthritis [Not Recovered/Not Resolved]
  - Device malfunction [Not Recovered/Not Resolved]
  - Device malfunction [Not Recovered/Not Resolved]
  - Drug dose omission [Not Recovered/Not Resolved]
  - Injection site scar [Not Recovered/Not Resolved]
